FAERS Safety Report 7927855-8 (Version None)
Quarter: 2011Q4

REPORT INFORMATION
  Report Type: 
  Country: None (occurrence: None)
  Receive Date: 20111118
  Receipt Date: 20111118
  Transmission Date: 20120403
  Serious: No
  Sender: FDA-Public Use
  Company Number: None

PATIENT
  Age: 70 Year
  Sex: Male
  Weight: 127 kg

DRUGS (2)
  1. AGGRENOX [Suspect]
     Indication: CEREBROVASCULAR ACCIDENT
     Dosage: 25 MG/200MG CAPSULES
     Dates: start: 20110601, end: 20111117
  2. ENALAPRIL MALEATE [Concomitant]
     Dosage: 10MG
     Dates: start: 20110601, end: 20111117

REACTIONS (17)
  - HYPERSENSITIVITY [None]
  - SWOLLEN TONGUE [None]
  - AMNESIA [None]
  - CEREBROVASCULAR ACCIDENT [None]
  - RASH [None]
  - URTICARIA [None]
  - DYSPHAGIA [None]
  - FATIGUE [None]
  - CONSTIPATION [None]
  - DIZZINESS [None]
  - DYSPEPSIA [None]
  - ABDOMINAL PAIN UPPER [None]
  - PRURITUS [None]
  - OEDEMA PERIPHERAL [None]
  - DYSPHONIA [None]
  - DIARRHOEA [None]
  - EYE SWELLING [None]
